FAERS Safety Report 11886298 (Version 1)
Quarter: 2016Q1

REPORT INFORMATION
  Report Type: Spontaneous
  Country: US (occurrence: US)
  Receive Date: 20160104
  Receipt Date: 20160104
  Transmission Date: 20160526
  Serious: No
  Sender: FDA-Public Use
  Company Number: US-MALLINCKRODT-T201501067

PATIENT
  Age: 46 Year
  Sex: Female
  Weight: 100 kg

DRUGS (4)
  1. ANAFRANIL [Suspect]
     Active Substance: CLOMIPRAMINE HYDROCHLORIDE
     Dosage: 25 MG, ONE QHS
     Route: 048
     Dates: start: 201412, end: 20150109
  2. ANAFRANIL [Suspect]
     Active Substance: CLOMIPRAMINE HYDROCHLORIDE
     Dosage: 75 MG, ONE QHS
     Route: 048
     Dates: start: 20150109, end: 20150123
  3. ANAFRANIL [Suspect]
     Active Substance: CLOMIPRAMINE HYDROCHLORIDE
     Indication: INSOMNIA
     Dosage: 50 MG, ONE QHS
     Route: 048
     Dates: start: 20111013, end: 20140417
  4. ANAFRANIL [Suspect]
     Active Substance: CLOMIPRAMINE HYDROCHLORIDE
     Dosage: 75 MG, TWO QHS
     Route: 048
     Dates: start: 20150123

REACTIONS (2)
  - Off label use [Unknown]
  - Panic attack [Unknown]

NARRATIVE: CASE EVENT DATE: 201501
